FAERS Safety Report 4910790-7 (Version None)
Quarter: 2006Q1

REPORT INFORMATION
  Report Type: 
  Country: None (occurrence: None)
  Receive Date: 20060210
  Receipt Date: 20060210
  Transmission Date: 20060701
  Serious: Yes (Hospitalization)
  Sender: FDA-Public Use
  Company Number: None

PATIENT
  Sex: Male
  Weight: 43 kg

DRUGS (3)
  1. CYCLOPHOSPHAMIDE [Suspect]
     Indication: ACUTE LYMPHOCYTIC LEUKAEMIA
     Dosage: 1400 MG
     Dates: start: 20051230, end: 20051230
  2. CYTARABINE [Suspect]
     Dosage: 624 MG
     Dates: start: 20051230, end: 20060107
  3. THIOGUANINE [Suspect]
     Dosage: 720 MG
     Dates: start: 20051230, end: 20060107

REACTIONS (7)
  - CANDIDIASIS [None]
  - HYPOTENSION [None]
  - KLEBSIELLA SEPSIS [None]
  - PLEURAL EFFUSION [None]
  - PLEURAL HAEMORRHAGE [None]
  - PROCEDURAL COMPLICATION [None]
  - VOMITING [None]
